FAERS Safety Report 7013643-6 (Version None)
Quarter: 2010Q3

REPORT INFORMATION
  Report Type: 
  Country: None (occurrence: None)
  Receive Date: 20100924
  Receipt Date: 20100915
  Transmission Date: 20110219
  Serious: Yes (Hospitalization)
  Sender: FDA-Public Use
  Company Number: JP-PFIZER INC-2010116381

PATIENT
  Age: 57 Year
  Sex: Male
  Weight: 52 kg

DRUGS (1)
  1. SUNITINIB MALATE [Suspect]
     Indication: PANCREATIC NEUROENDOCRINE TUMOUR
     Dosage: 37.5 MG, 1X/DAY
     Route: 048
     Dates: start: 20100824, end: 20100914

REACTIONS (4)
  - CONVULSION [None]
  - MALAISE [None]
  - MENINGITIS [None]
  - METASTASES TO CENTRAL NERVOUS SYSTEM [None]
